FAERS Safety Report 8890043 (Version 1)
Quarter: 2012Q4

REPORT INFORMATION
  Report Type: 
  Country: US (occurrence: US)
  Receive Date: 20121107
  Receipt Date: 20121107
  Transmission Date: 20130627
  Serious: No
  Sender: FDA-Public Use
  Company Number: US-PFIZER INC-2012273603

PATIENT
  Sex: Male

DRUGS (1)
  1. GENOTROPIN MQ [Suspect]
     Dosage: 0.6 mg, 6 times per week

REACTIONS (1)
  - Acne [Unknown]
